FAERS Safety Report 5147901-7 (Version None)
Quarter: 2006Q4

REPORT INFORMATION
  Report Type: 
  Country: None (occurrence: None)
  Receive Date: 20061106
  Receipt Date: 20060711
  Transmission Date: 20070319
  Serious: Yes (Other)
  Sender: FDA-Public Use
  Company Number: 2006095467

PATIENT
  Age: 49 Year
  Sex: Female
  Weight: 88.905 kg

DRUGS (1)
  1. BEXTRA [Suspect]
     Dosage: 20 MG (20 MG, 1 IN 1D)

REACTIONS (54)
  - ABDOMINAL PAIN [None]
  - ARTHRALGIA [None]
  - BACK PAIN [None]
  - BLOOD GLUCOSE FLUCTUATION [None]
  - BODY TEMPERATURE INCREASED [None]
  - CONCUSSION [None]
  - CONVULSION [None]
  - DEPRESSED MOOD [None]
  - DERMATITIS CONTACT [None]
  - DIABETES MELLITUS [None]
  - DRY MOUTH [None]
  - DYSKINESIA [None]
  - DYSPEPSIA [None]
  - DYSURIA [None]
  - ECCHYMOSIS [None]
  - ELECTROENCEPHALOGRAM ABNORMAL [None]
  - EXOSTOSIS [None]
  - FALL [None]
  - FOLLICULITIS [None]
  - GASTROOESOPHAGEAL REFLUX DISEASE [None]
  - HAEMATURIA [None]
  - HEADACHE [None]
  - HYPERGLYCAEMIA [None]
  - HYPOAESTHESIA [None]
  - INCONTINENCE [None]
  - LACERATION [None]
  - LATEX ALLERGY [None]
  - LICE INFESTATION [None]
  - LIP ULCERATION [None]
  - LOSS OF CONSCIOUSNESS [None]
  - MOUTH ULCERATION [None]
  - NASAL CONGESTION [None]
  - NASAL DISORDER [None]
  - NAUSEA [None]
  - NECK PAIN [None]
  - NERVE COMPRESSION [None]
  - NOCTURIA [None]
  - ORAL PAIN [None]
  - PALPITATIONS [None]
  - PARAESTHESIA [None]
  - POLYDIPSIA [None]
  - POLYURIA [None]
  - RASH PRURITIC [None]
  - ROAD TRAFFIC ACCIDENT [None]
  - SKIN LESION [None]
  - TONGUE BITING [None]
  - TREMOR [None]
  - ULCER [None]
  - URINARY TRACT INFECTION [None]
  - URTICARIA [None]
  - VAGINAL HAEMORRHAGE [None]
  - VOMITING [None]
  - WEIGHT DECREASED [None]
  - WEIGHT INCREASED [None]
